FAERS Safety Report 7531073-5 (Version None)
Quarter: 2011Q2

REPORT INFORMATION
  Report Type: 
  Country: None (occurrence: None)
  Receive Date: 20110531
  Receipt Date: 20110516
  Transmission Date: 20111010
  Serious: Yes (Hospitalization, Other)
  Sender: FDA-Public Use
  Company Number: 2011MA005974

PATIENT
  Age: 76 Year
  Sex: Male

DRUGS (7)
  1. AMIODARONE HCL [Concomitant]
  2. SULFAMETHOXAZOLE AND TRIMETHOPRIM [Suspect]
     Indication: URINARY TRACT INFECTION
     Dosage: 800 MG, OD
  3. PERINDIPRIL [Concomitant]
  4. ESOMEPRAZOLE MAGNESIUM [Concomitant]
  5. REPAGLINIDE [Concomitant]
  6. FUROSEMIDE [Concomitant]
  7. TRIMETHOPRIM [Concomitant]

REACTIONS (3)
  - HYPOGLYCAEMIA [None]
  - DRUG INTERACTION [None]
  - APHASIA [None]
